FAERS Safety Report 7186006-0 (Version None)
Quarter: 2010Q4

REPORT INFORMATION
  Report Type: 
  Country: None (occurrence: None)
  Receive Date: 20101222
  Receipt Date: 20101215
  Transmission Date: 20110411
  Serious: Yes (Other)
  Sender: FDA-Public Use
  Company Number: CA-PFIZER INC-2010172939

PATIENT
  Age: 89 Year
  Sex: Female

DRUGS (2)
  1. LYRICA [Suspect]
     Indication: FACIAL NEURALGIA
     Dosage: 50 MG, 3X/DAY
     Dates: start: 20100101
  2. CELEBREX [Suspect]
     Dosage: UNK

REACTIONS (2)
  - DEPRESSION [None]
  - HYPOVENTILATION [None]
